FAERS Safety Report 4904374-4 (Version None)
Quarter: 2006Q1

REPORT INFORMATION
  Report Type: 
  Country: None (occurrence: None)
  Receive Date: 20060208
  Receipt Date: 20050829
  Transmission Date: 20060701
  Serious: No
  Sender: FDA-Public Use
  Company Number: US-GLAXOSMITHKLINE-A0572220A

PATIENT
  Age: 36 Year
  Sex: Female

DRUGS (4)
  1. PAXIL [Suspect]
     Indication: DEPRESSION
     Dosage: 40MG PER DAY
     Route: 048
  2. ALLEGRA [Concomitant]
  3. PAXIL CR [Concomitant]
     Route: 048
  4. CYMBALTA [Concomitant]

REACTIONS (5)
  - DEPRESSIVE SYMPTOM [None]
  - IRRITABILITY [None]
  - NERVOUSNESS [None]
  - OBSESSIVE-COMPULSIVE DISORDER [None]
  - WEIGHT FLUCTUATION [None]
